FAERS Safety Report 5839469-4 (Version None)
Quarter: 2008Q3

REPORT INFORMATION
  Report Type: 
  Country: None (occurrence: None)
  Receive Date: 20080807
  Receipt Date: 20080801
  Transmission Date: 20090109
  Serious: Yes (Death)
  Sender: FDA-Public Use
  Company Number: 2008SP015776

PATIENT
  Age: 25 Year
  Sex: Male

DRUGS (3)
  1. PEG-INTRON [Suspect]
     Indication: DRUG USE FOR UNKNOWN INDICATION
     Dosage: 100 MCG;QW;SC
     Route: 058
     Dates: start: 20080731
  2. REBETOL [Suspect]
     Indication: DRUG USE FOR UNKNOWN INDICATION
     Dosage: 200 MG;TID;PO
     Route: 048
     Dates: start: 20080731
  3. ACETAMINOPHEN [Concomitant]

REACTIONS (1)
  - CARDIO-RESPIRATORY ARREST [None]
